FAERS Safety Report 7645104-5 (Version None)
Quarter: 2011Q3

REPORT INFORMATION
  Report Type: 
  Country: None (occurrence: None)
  Receive Date: 20110729
  Receipt Date: 20110722
  Transmission Date: 20111222
  Serious: Yes (Hospitalization, Other)
  Sender: FDA-Public Use
  Company Number: PHEH2010US03476

PATIENT
  Sex: Female

DRUGS (4)
  1. LOTREL [Concomitant]
  2. ZELNORM [Suspect]
  3. TENORMIN [Concomitant]
  4. PREVACID [Concomitant]

REACTIONS (31)
  - CARDIAC VALVE DISEASE [None]
  - MYOCARDIAL INFARCTION [None]
  - DEPRESSION [None]
  - ANAEMIA [None]
  - ANXIETY [None]
  - ELECTROCARDIOGRAM ST SEGMENT ABNORMAL [None]
  - GASTROOESOPHAGEAL REFLUX DISEASE [None]
  - ARRHYTHMIA [None]
  - INJURY [None]
  - HYPERTENSION [None]
  - GASTRIC ULCER [None]
  - VAGINAL INFECTION [None]
  - OBESITY [None]
  - CHEST PAIN [None]
  - OESOPHAGITIS [None]
  - HYPOAESTHESIA [None]
  - ABDOMINAL DISCOMFORT [None]
  - HYPERKALAEMIA [None]
  - SINUS TACHYCARDIA [None]
  - BLOOD POTASSIUM DECREASED [None]
  - HEADACHE [None]
  - NASAL CONGESTION [None]
  - PALPITATIONS [None]
  - ABDOMINAL PAIN UPPER [None]
  - DYSPEPSIA [None]
  - RESTLESS LEGS SYNDROME [None]
  - GASTRITIS [None]
  - PANCREATITIS ACUTE [None]
  - CONSTIPATION [None]
  - OEDEMA PERIPHERAL [None]
  - DENTAL CARIES [None]
